FAERS Safety Report 16073152 (Version 7)
Quarter: 2019Q2

REPORT INFORMATION
  Report Type: Report from Study
  Country: AR (occurrence: AR)
  Receive Date: 20190314
  Receipt Date: 20190628
  Transmission Date: 20190711
  Serious: Yes (Hospitalization)
  Sender: FDA-Public Use
  Company Number: AR-ACTELION-A-CH2019-187176

PATIENT
  Age: 43 Year
  Sex: Female
  Weight: 30 kg

DRUGS (2)
  1. OPSUMIT [Suspect]
     Active Substance: MACITENTAN
     Indication: PULMONARY ARTERIAL HYPERTENSION
     Route: 048
  2. VELETRI [Suspect]
     Active Substance: EPOPROSTENOL
     Indication: PULMONARY ARTERIAL HYPERTENSION
     Dosage: 1 NG/KG, PER MIN
     Route: 042
     Dates: start: 201804

REACTIONS (14)
  - Device breakage [Recovering/Resolving]
  - Tachycardia [Recovering/Resolving]
  - Malaise [Recovering/Resolving]
  - Catheter site thrombosis [Recovering/Resolving]
  - Hypotension [Recovering/Resolving]
  - Gastrointestinal oedema [Recovering/Resolving]
  - Respiratory disorder [Recovering/Resolving]
  - Dyspnoea [Unknown]
  - Influenza [Recovering/Resolving]
  - Ascites [Recovering/Resolving]
  - Fluid retention [Recovering/Resolving]
  - Pulmonary oedema [Recovering/Resolving]
  - Haematocrit decreased [Unknown]
  - Oxygen saturation decreased [Unknown]

NARRATIVE: CASE EVENT DATE: 20190305
